FAERS Safety Report 15814164 (Version 1)
Quarter: 2019Q1

REPORT INFORMATION
  Report Type: Spontaneous
  Country: US (occurrence: US)
  Receive Date: 20190111
  Receipt Date: 20190111
  Transmission Date: 20190417
  Serious: No
  Sender: FDA-Public Use
  Company Number: US-JAZZ-2018-US-006240

PATIENT
  Age: 69 Year
  Sex: Female

DRUGS (6)
  1. CLONIDINE. [Suspect]
     Active Substance: CLONIDINE
     Indication: PAIN
     Dosage: 3.537 ?G, QH
     Route: 037
     Dates: start: 20171017
  2. PRIALT [Suspect]
     Active Substance: ZICONOTIDE ACETATE
     Indication: PAIN
     Dosage: 0.177 ?G, QH
     Route: 037
     Dates: start: 20171017
  3. MORPHINE [Suspect]
     Active Substance: MORPHINE
     Dosage: 0.1 MG, QH
     Route: 037
  4. MORPHINE [Suspect]
     Active Substance: MORPHINE
     Indication: PAIN
     Dosage: 0.333 MG, QH
     Route: 037
     Dates: start: 20171017
  5. PRIALT [Suspect]
     Active Substance: ZICONOTIDE ACETATE
     Dosage: 0.21 ?G, QH
     Route: 037
  6. CLONIDINE. [Suspect]
     Active Substance: CLONIDINE
     Dosage: 3.54 ?G, QH
     Route: 037

REACTIONS (3)
  - Device issue [Unknown]
  - Withdrawal syndrome [Recovered/Resolved]
  - Implant site swelling [Recovered/Resolved]

NARRATIVE: CASE EVENT DATE: 20180425
